FAERS Safety Report 6475204-7 (Version None)
Quarter: 2009Q4

REPORT INFORMATION
  Report Type: 
  Country: None (occurrence: None)
  Receive Date: 20091204
  Receipt Date: 20090601
  Transmission Date: 20100525
  Serious: Yes (Hospitalization, Other)
  Sender: FDA-Public Use
  Company Number: US-ELI_LILLY_AND_COMPANY-US200903006731

PATIENT
  Sex: Male
  Weight: 113.83 kg

DRUGS (16)
  1. BYETTA [Suspect]
     Indication: TYPE 2 DIABETES MELLITUS
     Dosage: 5 UG, 2/D
     Route: 058
     Dates: start: 20060101, end: 20060401
  2. BYETTA [Suspect]
     Dosage: 10 UG, 2/D
     Route: 058
     Dates: start: 20060418
  3. AVANDIA [Concomitant]
     Indication: TYPE 2 DIABETES MELLITUS
  4. METFORMIN HCL [Concomitant]
     Indication: TYPE 2 DIABETES MELLITUS
  5. GLIPIZIDE [Concomitant]
     Indication: TYPE 2 DIABETES MELLITUS
  6. PRILOSEC [Concomitant]
     Indication: ERUCTATION
  7. PANTOPRAZOLE [Concomitant]
     Indication: ERUCTATION
  8. PLAVIX [Concomitant]
     Indication: CARDIAC DISORDER
  9. ASPIRIN [Concomitant]
     Indication: CARDIAC DISORDER
     Dosage: 81 MG, UNK
  10. CARVEDILOL [Concomitant]
     Indication: CARDIAC DISORDER
  11. ALTACE [Concomitant]
     Indication: CARDIAC DISORDER
  12. TRICOR [Concomitant]
     Indication: CARDIAC DISORDER
  13. NEURONTIN [Concomitant]
  14. LYRICA [Concomitant]
  15. ZETIA [Concomitant]
  16. GLUCOTROL XL [Concomitant]

REACTIONS (8)
  - ABDOMINAL DISCOMFORT [None]
  - ARTERIOSCLEROSIS [None]
  - BLOOD GLUCOSE INCREASED [None]
  - CHOLELITHIASIS [None]
  - ISCHAEMIC STROKE [None]
  - MACULAR DEGENERATION [None]
  - NAUSEA [None]
  - VISION BLURRED [None]
